FAERS Safety Report 4602882-7 (Version None)
Quarter: 2005Q1

REPORT INFORMATION
  Report Type: 
  Country: None (occurrence: None)
  Receive Date: 20050309
  Receipt Date: 20050224
  Transmission Date: 20050727
  Serious: Yes (Death, Life-Threatening, Hospitalization)
  Sender: FDA-Public Use
  Company Number: FR-GLAXOSMITHKLINE-B0372834A

PATIENT
  Age: 80 Year
  Sex: Male

DRUGS (8)
  1. ALKERAN [Suspect]
     Indication: MULTIPLE MYELOMA
     Dosage: 10MG PER DAY
     Route: 048
     Dates: start: 20041125, end: 20041128
  2. ZYLORIC [Concomitant]
     Route: 065
  3. APROVEL [Concomitant]
     Route: 065
  4. MEDIATENSYL [Concomitant]
     Route: 065
  5. LIPANOR [Concomitant]
     Route: 065
  6. NOOTROPYL [Concomitant]
     Route: 065
  7. REMINYL [Concomitant]
     Route: 065
  8. MEMANTINE HCL [Concomitant]
     Route: 065

REACTIONS (5)
  - HYPOXIA [None]
  - INTERSTITIAL LUNG DISEASE [None]
  - LUNG DISORDER [None]
  - PULMONARY FIBROSIS [None]
  - RESPIRATORY DISTRESS [None]
